FAERS Safety Report 5022040-4 (Version None)
Quarter: 2006Q2

REPORT INFORMATION
  Report Type: 
  Country: None (occurrence: None)
  Receive Date: 20060501
  Receipt Date: 20050912
  Transmission Date: 20061013
  Serious: Yes (Hospitalization)
  Sender: FDA-Public Use
  Company Number: TEST00205002895

PATIENT
  Age: 74 Year
  Sex: Male
  Weight: 109 kg

DRUGS (6)
  1. ANDROGEL [Suspect]
     Indication: ANDROGEN REPLACEMENT THERAPY
     Dosage: 5 GRAM(S) QD TRANSCUTANEOUS DAILY DOSE - SEE IMAGE
     Dates: start: 20050505
  2. HYDROCORTISONE [Concomitant]
  3. LEVOTHYROXINE SODIUM [Concomitant]
  4. LIPITOR [Concomitant]
  5. ENALAPRIL MALEATE [Concomitant]
  6. ASPIRIN [Concomitant]

REACTIONS (1)
  - AMNESIA [None]
